FAERS Safety Report 6891929-3 (Version None)
Quarter: 2010Q3

REPORT INFORMATION
  Report Type: 
  Country: None (occurrence: None)
  Receive Date: 20100731
  Receipt Date: 20071213
  Transmission Date: 20110219
  Serious: No
  Sender: FDA-Public Use
  Company Number: US-PFIZER INC-2007105356

PATIENT
  Sex: Female
  Weight: 56.8 kg

DRUGS (5)
  1. NORVASC [Suspect]
     Indication: BLOOD PRESSURE
  2. ALL OTHER THERAPEUTIC PRODUCTS [Suspect]
  3. BENICAR [Concomitant]
  4. LANOXIN [Concomitant]
  5. LOPRESSOR [Concomitant]

REACTIONS (1)
  - DIARRHOEA [None]
